FAERS Safety Report 9176951 (Version 2)
Quarter: 2013Q4

REPORT INFORMATION
  Report Type: Spontaneous
  Country: TR (occurrence: TR)
  Receive Date: 20130321
  Receipt Date: 20131227
  Transmission Date: 20140711
  Serious: Yes (Life-Threatening, Hospitalization)
  Sender: FDA-Public Use
  Company Number: TR-JNJFOC-20130306327

PATIENT
  Sex: Male

DRUGS (3)
  1. XEPLION [Suspect]
     Indication: SCHIZOPHRENIA
     Route: 030
  2. QUETIAPINE [Concomitant]
     Route: 065
     Dates: start: 20130308
  3. ARIPIPRAZOLE [Concomitant]
     Route: 065
     Dates: start: 20130308

REACTIONS (7)
  - Multi-organ failure [Recovered/Resolved]
  - Cholangitis [Recovered/Resolved]
  - Delirium [Recovered/Resolved]
  - Altered state of consciousness [Recovered/Resolved]
  - Renal impairment [Recovered/Resolved]
  - Hepatic function abnormal [Recovered/Resolved]
  - Hyperglycaemia [Recovered/Resolved]
